FAERS Safety Report 8352306-1 (Version None)
Quarter: 2012Q2

REPORT INFORMATION
  Report Type: 
  Country: None (occurrence: None)
  Receive Date: 20120511
  Receipt Date: 20110622
  Transmission Date: 20120825
  Serious: No
  Sender: FDA-Public Use
  Company Number: US-MYLANLABS-2011S1012995

PATIENT
  Age: 69 Year
  Sex: Female

DRUGS (5)
  1. AMBIEN CR [Suspect]
     Indication: SLEEP DISORDER
     Route: 048
     Dates: start: 20100301
  2. GABAPENTIN [Suspect]
  3. ANTIBIOTICS [Suspect]
     Indication: INFECTION
     Dates: start: 20110101
  4. ZOLPIDEM TARTRATE [Suspect]
     Indication: SLEEP DISORDER
     Route: 048
  5. AMITRIPTYLINE HCL [Suspect]
     Indication: INSOMNIA

REACTIONS (3)
  - DRUG INTERACTION [None]
  - LOCALISED INFECTION [None]
  - DRUG INEFFECTIVE [None]
